FAERS Safety Report 4681393-7 (Version None)
Quarter: 2005Q2

REPORT INFORMATION
  Report Type: 
  Country: None (occurrence: None)
  Receive Date: 20050601
  Receipt Date: 20050513
  Transmission Date: 20051028
  Serious: No
  Sender: FDA-Public Use
  Company Number: USA050598102

PATIENT
  Sex: Male

DRUGS (2)
  1. CYMBALTA [Suspect]
  2. ABILITY (ARIPIPRAZOLE) [Concomitant]

REACTIONS (1)
  - HEPATIC ENZYME INCREASED [None]
